FAERS Safety Report 13648546 (Version 4)
Quarter: 2017Q3

REPORT INFORMATION
  Report Type: Spontaneous
  Country: TR (occurrence: TR)
  Receive Date: 20170613
  Receipt Date: 20170802
  Transmission Date: 20171127
  Serious: Yes (Other)
  Sender: FDA-Public Use
  Company Number: TR-BAYER-2017-107327

PATIENT
  Sex: Female
  Weight: 50 kg

DRUGS (3)
  1. YASMIN [Suspect]
     Active Substance: DROSPIRENONE\ETHINYL ESTRADIOL
     Dosage: UNK
     Route: 048
     Dates: start: 20161015, end: 2017
  2. RISPERDAL [Concomitant]
     Active Substance: RISPERIDONE
     Indication: TIC
     Dosage: 1 MG, QD
     Dates: start: 201706
  3. RISPERDAL [Concomitant]
     Active Substance: RISPERIDONE
     Indication: TIC
     Dosage: 0.5 MG, QD
     Dates: start: 201705, end: 2017

REACTIONS (4)
  - Tic [Recovering/Resolving]
  - Gait disturbance [Recovered/Resolved]
  - Fatigue [Recovered/Resolved]
  - Blood disorder [Not Recovered/Not Resolved]
